FAERS Safety Report 8765253 (Version 1)
Quarter: 2012Q4

REPORT INFORMATION
  Report Type: 
  Country: US (occurrence: US)
  Receive Date: 20120903
  Receipt Date: 20120903
  Transmission Date: 20130627
  Serious: Yes (Life-Threatening, Hospitalization, Other)
  Sender: FDA-Public Use
  Company Number: US-PAR PHARMACEUTICAL, INC-2012SCPR004583

PATIENT

DRUGS (8)
  1. DOXEPIN [Suspect]
     Indication: SLEEP DISORDER
     Dosage: 25 mg at bedtime
     Route: 065
  2. ZOLINZA [Interacting]
     Indication: MYCOSIS FUNGOIDES
     Dosage: 400 mg, qd
     Route: 048
  3. SERTRALINE [Interacting]
     Indication: PRODUCT USED FOR UNKNOWN INDICATION
     Dosage: 100 mg, qd
     Route: 065
  4. HYDROCHLOROTHIAZIDE [Concomitant]
     Indication: PRODUCT USED FOR UNKNOWN INDICATION
     Dosage: 25 mg, qd
     Route: 065
  5. NPH INSULIN [Concomitant]
     Indication: PRODUCT USED FOR UNKNOWN INDICATION
     Dosage: UNK, Unknown
     Route: 065
  6. INSULIN [Concomitant]
     Indication: PRODUCT USED FOR UNKNOWN INDICATION
     Dosage: UNK, Unknown
     Route: 065
  7. NAPROXEN SODIUM [Concomitant]
     Indication: PAIN
     Dosage: UNK, as needed
     Route: 065
  8. OXYCODONE [Concomitant]
     Indication: PAIN
     Dosage: UNK, as needed
     Route: 065

REACTIONS (8)
  - Torsade de pointes [Recovered/Resolved]
  - Pulseless electrical activity [Recovered/Resolved]
  - Drug interaction [Unknown]
  - Electrocardiogram QT prolonged [Recovering/Resolving]
  - Pericardial effusion [Unknown]
  - Blood potassium decreased [Recovered/Resolved]
  - Haematochezia [Unknown]
  - Haematemesis [Unknown]
